FAERS Safety Report 5163205-0 (Version None)
Quarter: 2006Q4

REPORT INFORMATION
  Report Type: 
  Country: None (occurrence: None)
  Receive Date: 20061204
  Receipt Date: 20061127
  Transmission Date: 20070319
  Serious: Yes (Life-Threatening)
  Sender: FDA-Public Use
  Company Number: 2006SE06369

PATIENT
  Sex: Female

DRUGS (4)
  1. AMIAS 8MG TABLETS [Suspect]
     Indication: CARDIAC FAILURE
     Route: 048
     Dates: start: 20060501, end: 20061026
  2. FUROSEMIDE [Concomitant]
     Indication: CARDIAC FAILURE
     Route: 048
  3. LEVOTHYROXINE SODIUM [Concomitant]
     Route: 048
  4. WARFARIN SODIUM [Concomitant]
     Route: 048

REACTIONS (2)
  - DYSPNOEA [None]
  - SWOLLEN TONGUE [None]
